FAERS Safety Report 9294784 (Version 1)
Quarter: 2013Q2

REPORT INFORMATION
  Report Type: Spontaneous
  Country: ES (occurrence: ES)
  Receive Date: 20130517
  Receipt Date: 20130517
  Transmission Date: 20140414
  Serious: Yes (Other)
  Sender: FDA-Public Use
  Company Number: PHHY2013ES048923

PATIENT
  Age: 70 Year
  Sex: Male

DRUGS (3)
  1. GLIVEC [Suspect]
     Indication: CHRONIC MYELOID LEUKAEMIA
     Dosage: 400 MG, UNK
     Route: 048
     Dates: start: 20130206, end: 20130422
  2. ALLOPURINOL [Suspect]
     Dosage: 300 MG, DAILY
     Route: 048
     Dates: start: 20130207, end: 201303
  3. METHOTREXATE [Suspect]
     Indication: RHEUMATOID ARTHRITIS
     Dosage: 10 MG, DAILY
     Route: 048
     Dates: start: 2001, end: 201302

REACTIONS (3)
  - Drug reaction with eosinophilia and systemic symptoms [Unknown]
  - Toxic skin eruption [Unknown]
  - Dermatitis exfoliative [Unknown]
